FAERS Safety Report 16110325 (Version 3)
Quarter: 2020Q1

REPORT INFORMATION
  Report Type: Spontaneous
  Country: FR (occurrence: FR)
  Receive Date: 20190325
  Receipt Date: 20200109
  Transmission Date: 20200409
  Serious: Yes (Death, Hospitalization)
  Sender: FDA-Public Use
  Company Number: FR-ORPHAN EUROPE-2064478

PATIENT
  Age: 6 Year
  Sex: Female
  Weight: 17 kg

DRUGS (8)
  1. CARBAGLU [Suspect]
     Active Substance: CARGLUMIC ACID
     Indication: HYPERGLYCINAEMIA
     Dates: start: 201607, end: 20190107
  2. UCEDANE [Concomitant]
     Dates: start: 20190108, end: 20190131
  3. CARBAGLU [Suspect]
     Active Substance: CARGLUMIC ACID
     Dates: start: 20190131, end: 20190204
  4. CARBAGLU [Suspect]
     Active Substance: CARGLUMIC ACID
     Dates: start: 20160616
  5. UCEDANE [Concomitant]
     Dates: start: 20190119, end: 20190131
  6. FLAGYL [Concomitant]
     Active Substance: METRONIDAZOLE\METRONIDAZOLE HYDROCHLORIDE
  7. UVEDOSE [Concomitant]
     Active Substance: CHOLECALCIFEROL
  8. CARBAGLU [Suspect]
     Active Substance: CARGLUMIC ACID
     Dates: start: 20190115, end: 201901

REACTIONS (5)
  - Product substitution issue [Fatal]
  - Metabolic acidosis [Fatal]
  - Hyperammonaemia [Fatal]
  - Condition aggravated [Fatal]
  - Disseminated intravascular coagulation [Fatal]

NARRATIVE: CASE EVENT DATE: 20190115
